FAERS Safety Report 4693089-6 (Version None)
Quarter: 2005Q2

REPORT INFORMATION
  Report Type: 
  Country: None (occurrence: None)
  Receive Date: 20050617
  Receipt Date: 20050607
  Transmission Date: 20051028
  Serious: Yes (Hospitalization)
  Sender: FDA-Public Use
  Company Number: BE-BRISTOL-MYERS SQUIBB COMPANY-12995890

PATIENT
  Age: 42 Year
  Sex: Female

DRUGS (3)
  1. ATAZANAVIR [Suspect]
     Indication: HIV TEST POSITIVE
     Route: 048
  2. VIREAD [Concomitant]
  3. EPIVIR [Concomitant]

REACTIONS (1)
  - PELVIC INFLAMMATORY DISEASE [None]
